FAERS Safety Report 12340309 (Version 1)
Quarter: 2016Q2

REPORT INFORMATION
  Report Type: Report from Study
  Country: BR (occurrence: BR)
  Receive Date: 20160506
  Receipt Date: 20160506
  Transmission Date: 20160815
  Serious: Yes (Other)
  Sender: FDA-Public Use
  Company Number: PHHY2016BR060844

PATIENT
  Sex: Female
  Weight: 72 kg

DRUGS (3)
  1. DIOVAN [Suspect]
     Active Substance: VALSARTAN
     Indication: HYPERTENSION
     Dosage: 1 DF, QID (80 MG VALSARTAN)
     Route: 048
  2. DIOVAN [Suspect]
     Active Substance: VALSARTAN
     Dosage: 2 DF, (80 MG VALSARTAN) (2 IN THE MORNING AND 2 AT THE EVENING)
     Route: 048
  3. DIOVAN [Suspect]
     Active Substance: VALSARTAN
     Dosage: 160 MG, BID
     Route: 048

REACTIONS (2)
  - Memory impairment [Recovering/Resolving]
  - Dementia Alzheimer^s type [Recovering/Resolving]
